FAERS Safety Report 7569582-5 (Version None)
Quarter: 2011Q2

REPORT INFORMATION
  Report Type: 
  Country: None (occurrence: None)
  Receive Date: 20110621
  Receipt Date: 20110621
  Transmission Date: 20111010
  Serious: Yes (Life-Threatening)
  Sender: FDA-Public Use
  Company Number: None

PATIENT
  Age: 40 Year
  Sex: Female
  Weight: 75.1 kg

DRUGS (1)
  1. CELEXA [Suspect]
     Indication: MAJOR DEPRESSION
     Dosage: 80MG ONCE DAILY ORAL 2 WEESK PRIOR TO PRESENTATION
     Route: 048

REACTIONS (2)
  - TORSADE DE POINTES [None]
  - ARRHYTHMIA [None]
